FAERS Safety Report 8191563 (Version 4)
Quarter: 2013Q1

REPORT INFORMATION
  Report Type: Spontaneous
  Country: US (occurrence: US)
  Receive Date: 20111020
  Receipt Date: 20130121
  Transmission Date: 20140127
  Serious: Yes (Disabling)
  Sender: FDA-Public Use
  Company Number: US-ELI_LILLY_AND_COMPANY-US201110001884

PATIENT
  Sex: Female

DRUGS (8)
  1. FORTEO [Suspect]
     Indication: OSTEOPOROSIS
     Dosage: 20 UG, QD
     Route: 058
     Dates: start: 20110908
  2. FORTEO [Suspect]
     Dosage: 20 UG, QD
     Route: 058
     Dates: start: 20110908
  3. EVISTA [Concomitant]
     Indication: PROPHYLAXIS
     Dosage: 60 MG, QD
     Dates: start: 2010
  4. VITAMIN E                            /001105/ [Concomitant]
     Dosage: UNK, QD
  5. FISH OIL [Concomitant]
     Dosage: UNK, QD
  6. MULTIVITAMIN [Concomitant]
     Dosage: UNK, QD
  7. CALCIUM [Concomitant]
     Dosage: UNK, QD
  8. VITAMIN D NOS [Concomitant]
     Dosage: UNK, QD

REACTIONS (8)
  - Osteoporosis [Recovered/Resolved]
  - Rib fracture [Unknown]
  - Back pain [Unknown]
  - Injection site bruising [Recovering/Resolving]
  - Medication error [Unknown]
  - Fear [Unknown]
  - Arthritis [Unknown]
  - Incorrect dose administered [Unknown]
